FAERS Safety Report 5632466-3 (Version None)
Quarter: 2008Q1

REPORT INFORMATION
  Report Type: 
  Country: None (occurrence: None)
  Receive Date: 20080220
  Receipt Date: 20080219
  Transmission Date: 20080703
  Serious: Yes (Other)
  Sender: FDA-Public Use
  Company Number: US-BOEHRINGER INGELHEIM GMBH, GERMANY-2008-DE-01046GD

PATIENT
  Sex: Male

DRUGS (9)
  1. PREDNISONE TAB [Suspect]
     Indication: BRONCHOPULMONARY ASPERGILLOSIS ALLERGIC
     Route: 051
  2. PREDNISONE TAB [Suspect]
     Indication: ALLERGIC SINUSITIS
     Route: 051
  3. PREDNISONE TAB [Suspect]
     Indication: SINUSITIS FUNGAL
     Route: 051
  4. STEROIDS [Suspect]
     Indication: BRONCHOPULMONARY ASPERGILLOSIS ALLERGIC
     Dosage: HIGH DOSE
     Route: 055
  5. STEROIDS [Suspect]
     Indication: ALLERGIC SINUSITIS
  6. STEROIDS [Suspect]
     Indication: SINUSITIS FUNGAL
  7. SALMETEROL [Suspect]
     Indication: BRONCHOPULMONARY ASPERGILLOSIS ALLERGIC
  8. SALMETEROL [Suspect]
     Indication: ALLERGIC SINUSITIS
  9. SALMETEROL [Suspect]
     Indication: SINUSITIS FUNGAL

REACTIONS (6)
  - CONDITION AGGRAVATED [None]
  - CUSHINGOID [None]
  - DRUG INEFFECTIVE [None]
  - HYPERTENSION [None]
  - SLEEP APNOEA SYNDROME [None]
  - WEIGHT INCREASED [None]
